FAERS Safety Report 25507448 (Version 1)
Quarter: 2025Q3

REPORT INFORMATION
  Report Type: Spontaneous
  Country: JP (occurrence: JP)
  Receive Date: 20250703
  Receipt Date: 20250703
  Transmission Date: 20251021
  Serious: Yes (Death, Hospitalization, Other)
  Sender: MERCK SHARP & DOHME LLC
  Company Number: JP-MSD-M2024-51224

PATIENT
  Sex: Male

DRUGS (2)
  1. KEYTRUDA [Suspect]
     Active Substance: PEMBROLIZUMAB
     Indication: Transitional cell carcinoma
     Dosage: DOSE DESCRIPTION : 200 MILLIGRAM, Q3W?DAILY DOSE : 9.4 MILLIGRAM?REGIMEN DOSE : 200  MILLIGRAM
     Route: 041
     Dates: start: 202411, end: 202411
  2. PADCEV [Concomitant]
     Active Substance: ENFORTUMAB VEDOTIN-EJFV
     Indication: Transitional cell carcinoma
     Dosage: DOSE DESCRIPTION : 1.25 MILLIGRAM/KILOGRAM, QD?DAILY DOSE : 1.25 MILLIGRAM/KILOGRAM
     Route: 041
     Dates: start: 202411, end: 2024

REACTIONS (4)
  - Seizure [Fatal]
  - Altered state of consciousness [Fatal]
  - Encephalitis [Unknown]
  - Meningitis [Unknown]

NARRATIVE: CASE EVENT DATE: 20241201
